FAERS Safety Report 8617849-1 (Version None)
Quarter: 2012Q3

REPORT INFORMATION
  Report Type: 
  Country: None (occurrence: None)
  Receive Date: 20120824
  Receipt Date: 20120302
  Transmission Date: 20120928
  Serious: No
  Sender: FDA-Public Use
  Company Number: US-ASTRAZENECA-2012SE14778

PATIENT
  Age: 80 Year
  Sex: Female
  Weight: 44 kg

DRUGS (6)
  1. LISINOPRIL [Concomitant]
     Indication: HYPERTENSION
     Route: 048
  2. SPIRIVA [Concomitant]
     Indication: RESPIRATORY DISORDER
     Dosage: UNKNOWN, QD
  3. NEXIUM [Suspect]
     Indication: GASTROOESOPHAGEAL REFLUX DISEASE
     Route: 048
  4. ADVIR [Concomitant]
     Indication: RESPIRATORY DISORDER
     Dosage: 250/50, BID
  5. SYMBICORT [Suspect]
     Indication: RESPIRATORY DISORDER
     Dosage: 80/4.5 MCG, UNKNOWN
     Route: 055
  6. VERAPAMIL [Concomitant]
     Indication: HYPERTENSION
     Route: 048

REACTIONS (4)
  - DIARRHOEA [None]
  - DYSPNOEA [None]
  - PNEUMONIA [None]
  - SNEEZING [None]
